FAERS Safety Report 8499553-6 (Version None)
Quarter: 2012Q3

REPORT INFORMATION
  Report Type: 
  Country: None (occurrence: None)
  Receive Date: 20120710
  Receipt Date: 20120628
  Transmission Date: 20120928
  Serious: Yes (Hospitalization, Other)
  Sender: FDA-Public Use
  Company Number: JP-BRISTOL-MYERS SQUIBB COMPANY-16677619

PATIENT
  Age: 51 Year
  Sex: Female
  Weight: 54 kg

DRUGS (4)
  1. GRANISETRON [Concomitant]
     Route: 041
  2. CHLOR-TRIMETON [Concomitant]
     Route: 041
  3. DEXAMETHASONE SODIUM PHOSPHATE [Concomitant]
     Route: 041
  4. ERBITUX [Suspect]
     Indication: COLORECTAL CANCER
     Dosage: 16NOV2011-29FEB12 AGAIN IN 9MAY12-9MAY12
     Route: 042
     Dates: start: 20111116, end: 20120509

REACTIONS (3)
  - CARDIAC FAILURE ACUTE [None]
  - INFUSION RELATED REACTION [None]
  - ENDOCARDITIS [None]
